FAERS Safety Report 7216855-1 (Version None)
Quarter: 2011Q1

REPORT INFORMATION
  Report Type: 
  Country: None (occurrence: None)
  Receive Date: 20110104
  Receipt Date: 20110104
  Transmission Date: 20110831
  Serious: No
  Sender: FDA-Public Use
  Company Number: None

PATIENT
  Age: 52 Year
  Sex: Male
  Weight: 74.8435 kg

DRUGS (1)
  1. LEVAQUIN [Suspect]
     Indication: EPIDIDYMITIS
     Dosage: 1 1 PO
     Route: 048
     Dates: start: 20100405, end: 20100505

REACTIONS (2)
  - NEUROPATHY PERIPHERAL [None]
  - TENDON PAIN [None]
